FAERS Safety Report 14852630 (Version 1)
Quarter: 2018Q2

REPORT INFORMATION
  Report Type: Spontaneous
  Country: PR (occurrence: PR)
  Receive Date: 20180420
  Receipt Date: 20180420
  Transmission Date: 20180711
  Serious: No
  Sender: FDA-Public Use
  Company Number: None

PATIENT
  Age: 66 Year
  Sex: Male
  Weight: 110.25 kg

DRUGS (1)
  1. VANCOMYCIN [Suspect]
     Active Substance: VANCOMYCIN
     Indication: CELLULITIS
     Route: 042
     Dates: start: 20180324, end: 20180324

REACTIONS (4)
  - Cough [None]
  - Discomfort [None]
  - Throat irritation [None]
  - Lacrimation increased [None]

NARRATIVE: CASE EVENT DATE: 20180324
